FAERS Safety Report 14067891 (Version 8)
Quarter: 2018Q3

REPORT INFORMATION
  Report Type: Report from Study
  Country: FR (occurrence: FR)
  Receive Date: 20171009
  Receipt Date: 20180905
  Transmission Date: 20181010
  Serious: Yes (Life-Threatening, Hospitalization, Other)
  Sender: FDA-Public Use
  Company Number: DK-SA-2017SA189743

PATIENT
  Age: 25 Year
  Sex: Female
  Weight: 74 kg

DRUGS (22)
  1. SPECIAFOLDINE [Concomitant]
     Active Substance: FOLIC ACID
     Indication: PROPHYLAXIS
     Dosage: UNK
     Dates: start: 20170613, end: 20170719
  2. LEVOTHYROX [Concomitant]
     Active Substance: LEVOTHYROXINE
     Indication: ANTI-THYROID ANTIBODY
     Dosage: UNK
     Dates: start: 20170719
  3. SPASFON [PHLOROGLUCINOL;TRIMETHYLPHLOROGLUCINOL] [Concomitant]
     Indication: PROPHYLAXIS
     Dosage: UNK
     Dates: start: 20171231, end: 20180101
  4. PARACETAMOL [Concomitant]
     Active Substance: ACETAMINOPHEN
     Indication: PROPHYLAXIS
     Dosage: UNK
     Dates: start: 20171212, end: 20171212
  5. GLUCOSE [Concomitant]
     Active Substance: DEXTROSE
     Indication: HYPOGLYCAEMIA
     Dosage: UNK
     Dates: start: 20171231, end: 20171231
  6. ACUPAN [Concomitant]
     Active Substance: NEFOPAM HYDROCHLORIDE
     Indication: BACK PAIN
     Dosage: UNK
     Dates: start: 20171212, end: 20171212
  7. TARDYFERON [Concomitant]
     Active Substance: FERROUS SULFATE
     Indication: ANAEMIA
     Dosage: UNK
     Dates: start: 20171219, end: 201712
  8. SETOFILM [Concomitant]
     Active Substance: ONDANSETRON
     Indication: NAUSEA
     Dosage: UNK
     Dates: start: 20171212, end: 20171212
  9. NOVORAPID [Suspect]
     Active Substance: INSULIN ASPART
     Indication: TYPE 1 DIABETES MELLITUS
     Dosage: 44 IU,QD
     Route: 058
     Dates: start: 20160223, end: 20170703
  10. PARACETAMOL [Concomitant]
     Active Substance: ACETAMINOPHEN
     Dosage: UNK UNK, QD
     Dates: start: 20171231, end: 20180101
  11. ASPIRINE [Concomitant]
     Active Substance: ASPIRIN
     Indication: PROPHYLAXIS
     Dosage: UNK
     Dates: start: 20170719
  12. NOVORAPID [Suspect]
     Active Substance: INSULIN ASPART
     Dosage: 74.7 IU,QD
     Route: 058
     Dates: start: 20170703
  13. UVEDOSE [Concomitant]
     Active Substance: CHOLECALCIFEROL
     Indication: VITAMIN D DEFICIENCY
     Dosage: UNK
     Dates: start: 20170614
  14. VOGALENE [Concomitant]
     Active Substance: METOPIMAZINE
     Indication: PROPHYLAXIS
     Dosage: UNK
     Route: 065
     Dates: start: 20170622, end: 20170703
  15. INSULIN GLARGINE [Suspect]
     Active Substance: INSULIN GLARGINE
     Indication: TYPE 1 DIABETES MELLITUS
     Dosage: 27 IU, QD
     Dates: start: 20160315, end: 20170703
  16. NOVORAPID [Suspect]
     Active Substance: INSULIN ASPART
     Dosage: 124.8 IU, QD
     Route: 058
  17. GLUCOSE [Concomitant]
     Active Substance: DEXTROSE
     Indication: PROPHYLAXIS
     Dosage: UNK, QD
     Dates: start: 20180101, end: 20180102
  18. UVEDOSE [Concomitant]
     Active Substance: CHOLECALCIFEROL
     Indication: PROPHYLAXIS
     Dosage: UNK
     Dates: start: 20171113, end: 20171113
  19. SPECIAFOLDINE [Concomitant]
     Active Substance: FOLIC ACID
     Dosage: UNK
     Route: 065
     Dates: start: 20171219, end: 201712
  20. FERINJECT [Concomitant]
     Active Substance: FERRIC CARBOXYMALTOSE
     Indication: ANAEMIA
     Dosage: UNK
     Dates: start: 20171211, end: 20171211
  21. INFLUENZA VACCINE [Concomitant]
     Active Substance: INFLUENZA VIRUS VACCINE
     Indication: PROPHYLAXIS
     Dosage: UNK
     Dates: start: 20171113, end: 20171113
  22. NOVORAPID [Suspect]
     Active Substance: INSULIN ASPART
     Dosage: 126 IU, QD
     Route: 058
     Dates: start: 20170703

REACTIONS (9)
  - Postpartum haemorrhage [Recovered/Resolved]
  - Condition aggravated [Recovered/Resolved]
  - Failed induction of labour [Recovered/Resolved]
  - Diabetes mellitus inadequate control [Recovered/Resolved]
  - Foetal disorder [Recovered/Resolved]
  - Foetal macrosomia [Recovered/Resolved]
  - Diabetic retinopathy [Recovered/Resolved]
  - Exposure during pregnancy [Unknown]
  - Hepatocellular injury [Recovered/Resolved]

NARRATIVE: CASE EVENT DATE: 20170401
